FAERS Safety Report 10067149 (Version 1)
Quarter: 2014Q2

REPORT INFORMATION
  Report Type: Spontaneous
  Country: FR (occurrence: FR)
  Receive Date: 20140409
  Receipt Date: 20140409
  Transmission Date: 20141212
  Serious: Yes (Other)
  Sender: FDA-Public Use
  Company Number: FR-UCBSA-116689

PATIENT
  Age: 57 Year
  Sex: Female

DRUGS (12)
  1. KEPPRA [Suspect]
  2. BACTRIM [Suspect]
     Indication: FEBRILE NEUTROPENIA
  3. AMLODIPINE [Suspect]
  4. TEMODAL [Suspect]
     Indication: GLIOBLASTOMA
  5. DIFFU K [Concomitant]
  6. AVASTIN [Concomitant]
     Indication: GLIOBLASTOMA
  7. ALPRAZOLAM [Concomitant]
  8. DAFALGAN [Concomitant]
  9. IMOVANE [Concomitant]
  10. INEXIUM [Concomitant]
  11. SOLUPRED [Concomitant]
  12. PRIMPERAN [Concomitant]

REACTIONS (1)
  - Toxic skin eruption [Unknown]
